FAERS Safety Report 5416555-4 (Version None)
Quarter: 2007Q3

REPORT INFORMATION
  Report Type: 
  Country: None (occurrence: None)
  Receive Date: 20070816
  Receipt Date: 20070806
  Transmission Date: 20080115
  Serious: Yes (Hospitalization, Other)
  Sender: FDA-Public Use
  Company Number: AU-AMGEN-US232720

PATIENT
  Sex: Male
  Weight: 77 kg

DRUGS (2)
  1. NEUPOGEN [Suspect]
     Indication: NEUTROPENIA
     Route: 058
     Dates: start: 19951201, end: 20070301
  2. BACTRIM DS [Concomitant]
     Route: 065
     Dates: start: 19950101, end: 20070301

REACTIONS (3)
  - CELLULITIS [None]
  - COUGH [None]
  - MYELODYSPLASTIC SYNDROME [None]
